FAERS Safety Report 19168043 (Version 1)
Quarter: 2021Q2

REPORT INFORMATION
  Report Type: Spontaneous
  Country: US (occurrence: US)
  Receive Date: 20210421
  Receipt Date: 20210421
  Transmission Date: 20210717
  Serious: Yes (Hospitalization)
  Sender: FDA-Public Use
  Company Number: None

PATIENT
  Age: 61 Year
  Sex: Male

DRUGS (4)
  1. PREDNISONE. [Concomitant]
     Active Substance: PREDNISONE
  2. ESBRIET [Suspect]
     Active Substance: PIRFENIDONE
     Indication: RESPIRATORY DISORDER
     Dates: start: 20210219
  3. DOXYCYCL HYC [Concomitant]
  4. FAMOTIDINE. [Concomitant]
     Active Substance: FAMOTIDINE

REACTIONS (2)
  - Therapy interrupted [None]
  - COVID-19 [None]

NARRATIVE: CASE EVENT DATE: 20210420
